FAERS Safety Report 13822704 (Version 10)
Quarter: 2019Q4

REPORT INFORMATION
  Report Type: Report from Study
  Country: US (occurrence: US)
  Receive Date: 20170801
  Receipt Date: 20191113
  Transmission Date: 20200122
  Serious: Yes (Hospitalization)
  Sender: FDA-Public Use
  Company Number: US-ACTELION-A-NJ2017-155322

PATIENT
  Age: 66 Year
  Sex: Female

DRUGS (3)
  1. DILTIAZEM. [Concomitant]
     Active Substance: DILTIAZEM
  2. TRACLEER [Suspect]
     Active Substance: BOSENTAN
     Indication: PULMONARY ARTERIAL HYPERTENSION
     Dosage: 125 MG, BID
     Route: 048
     Dates: start: 20161206
  3. XARELTO [Concomitant]
     Active Substance: RIVAROXABAN

REACTIONS (15)
  - Ulcer [Unknown]
  - Hypotension [Unknown]
  - Headache [Unknown]
  - Heart rate irregular [Recovering/Resolving]
  - Transfusion [Unknown]
  - Sinusitis [Unknown]
  - Malaise [Unknown]
  - Cellulitis [Recovering/Resolving]
  - Medical procedure [Unknown]
  - Fluid retention [Unknown]
  - Peripheral swelling [Unknown]
  - Urinary tract infection [Unknown]
  - Oedema [Unknown]
  - Lymphoedema [Unknown]
  - Swelling face [Unknown]

NARRATIVE: CASE EVENT DATE: 20170609
